FAERS Safety Report 24691243 (Version 2)
Quarter: 2024Q4

REPORT INFORMATION
  Report Type: Spontaneous
  Country: SG (occurrence: SG)
  Receive Date: 20241203
  Receipt Date: 20241203
  Transmission Date: 20250115
  Serious: Yes (Hospitalization, Other)
  Sender: PFIZER
  Company Number: SG-PFIZER INC-2011062222

PATIENT
  Age: 62 Year
  Sex: Female

DRUGS (4)
  1. METHOTREXATE SODIUM [Suspect]
     Active Substance: METHOTREXATE SODIUM
     Dosage: 7.5 MG, 1X/DAY
     Route: 048
  2. PREDNISOLONE [Concomitant]
     Active Substance: PREDNISOLONE
     Indication: Rheumatoid arthritis
  3. TACROLIMUS [Concomitant]
     Active Substance: TACROLIMUS
     Indication: Rheumatoid arthritis
  4. MINOCYCLINE [Concomitant]
     Active Substance: MINOCYCLINE HYDROCHLORIDE
     Indication: Rheumatoid arthritis

REACTIONS (13)
  - Accidental overdose [Unknown]
  - Toxicity to various agents [Unknown]
  - Nausea [Unknown]
  - Vomiting [Unknown]
  - Pain [Unknown]
  - Skin erosion [Recovered/Resolved]
  - Lip erosion [Unknown]
  - Mouth ulceration [Unknown]
  - Dehydration [Unknown]
  - Pancytopenia [Recovering/Resolving]
  - Neutropenia [Recovering/Resolving]
  - Acute kidney injury [Recovering/Resolving]
  - Malaise [Unknown]
